FAERS Safety Report 8387049-1 (Version None)
Quarter: 2012Q2

REPORT INFORMATION
  Report Type: 
  Country: None (occurrence: None)
  Receive Date: 20120525
  Receipt Date: 20120524
  Transmission Date: 20120825
  Serious: Yes (Life-Threatening, Hospitalization)
  Sender: FDA-Public Use
  Company Number: JP-ABBOTT-12P-087-0935095-00

PATIENT
  Sex: Male
  Weight: 56.5 kg

DRUGS (5)
  1. AMIODARONE HYDROCHLORIDE [Suspect]
     Indication: ATRIAL FIBRILLATION
     Route: 048
     Dates: start: 20120411, end: 20120423
  2. CLARITHROMYCIN [Suspect]
     Indication: UPPER RESPIRATORY TRACT INFLAMMATION
     Route: 048
     Dates: start: 20120420, end: 20120423
  3. CLARITHROMYCIN [Suspect]
     Indication: PYREXIA
  4. WARFARIN POTASSIUM [Concomitant]
     Indication: ATRIAL FIBRILLATION
     Route: 048
  5. BISOPROLOL FUMARATE [Concomitant]
     Indication: ATRIAL FIBRILLATION
     Route: 048

REACTIONS (4)
  - AGRANULOCYTOSIS [None]
  - LIVER DISORDER [None]
  - HEPATIC FUNCTION ABNORMAL [None]
  - FEBRILE NEUTROPENIA [None]
